FAERS Safety Report 12005385 (Version 1)
Quarter: 2016Q1

REPORT INFORMATION
  Report Type: Spontaneous
  Country: GB (occurrence: GB)
  Receive Date: 20160204
  Receipt Date: 20160204
  Transmission Date: 20160526
  Serious: Yes (Other)
  Sender: FDA-Public Use
  Company Number: GB-ELI_LILLY_AND_COMPANY-GB201602000692

PATIENT
  Sex: Female

DRUGS (1)
  1. ERBITUX [Suspect]
     Active Substance: CETUXIMAB
     Indication: TONGUE NEOPLASM MALIGNANT STAGE UNSPECIFIED
     Dosage: 1 DF, UNKNOWN
     Route: 042

REACTIONS (6)
  - Tinnitus [Unknown]
  - Rash [Unknown]
  - Throat irritation [Unknown]
  - Deafness [Unknown]
  - Dysphonia [Unknown]
  - Oral pain [Unknown]
